FAERS Safety Report 5490402-7 (Version None)
Quarter: 2007Q4

REPORT INFORMATION
  Report Type: 
  Country: None (occurrence: None)
  Receive Date: 20071019
  Receipt Date: 20071011
  Transmission Date: 20080405
  Serious: Yes (Other)
  Sender: FDA-Public Use
  Company Number: PHBS2007BR06383

PATIENT
  Age: 38 Year
  Sex: Male
  Weight: 69 kg

DRUGS (2)
  1. TEGRETOL CR [Suspect]
     Indication: CONVULSION
     Dosage: 400 MG, TID
     Route: 048
  2. GARDAN TAB [Concomitant]
     Dosage: 2 TABLETS/DAY
     Route: 048

REACTIONS (4)
  - CHEST PAIN [None]
  - LEUKOPENIA [None]
  - THALASSAEMIA [None]
  - TINNITUS [None]
